FAERS Safety Report 8121993-5 (Version None)
Quarter: 2012Q1

REPORT INFORMATION
  Report Type: 
  Country: None (occurrence: None)
  Receive Date: 20120207
  Receipt Date: 20120207
  Transmission Date: 20120608
  Serious: No
  Sender: FDA-Public Use
  Company Number: None

PATIENT
  Sex: Female

DRUGS (1)
  1. BOTOX [Suspect]
     Dosage: 200 UNIT IJ

REACTIONS (2)
  - EYELID OEDEMA [None]
  - LACRIMATION INCREASED [None]
